FAERS Safety Report 15171529 (Version 1)
Quarter: 2018Q3

REPORT INFORMATION
  Report Type: Spontaneous
  Country: US (occurrence: US)
  Receive Date: 20180622
  Receipt Date: 20180622
  Transmission Date: 20181010
  Serious: Yes (Death)
  Sender: FDA-Public Use
  Company Number: None

PATIENT
  Age: 74 Year
  Sex: Female

DRUGS (13)
  1. HYDROCHLOROTHIAZIDE 25MG [Concomitant]
     Active Substance: HYDROCHLOROTHIAZIDE
  2. RANEXA 500MG [Concomitant]
  3. KLOR?CON 20 MEQ [Concomitant]
  4. NITROGLYCERIN 0.4MG [Concomitant]
  5. BYSTOLIC [Concomitant]
     Active Substance: NEBIVOLOL HYDROCHLORIDE
  6. SIMVASTATIN 20MG [Concomitant]
     Active Substance: SIMVASTATIN
  7. BENICAR 5MG [Concomitant]
  8. FENTANYL 12MCG [Concomitant]
     Active Substance: FENTANYL
  9. MEGESTROL 40MG/5ML [Concomitant]
  10. CYCLOBENZAPRINE 5MG [Concomitant]
     Active Substance: CYCLOBENZAPRINE
  11. HUMIRA [Suspect]
     Active Substance: ADALIMUMAB
     Dosage: ?          OTHER FREQUENCY:EVERY 2 WEEKS;?
     Route: 058
     Dates: start: 20180115
  12. OLMESARTAN 20MG [Concomitant]
     Active Substance: OLMESARTAN
  13. ISOSORBIDE MONONITRATE 60MG ER [Concomitant]

REACTIONS (1)
  - Death [None]

NARRATIVE: CASE EVENT DATE: 20180518
